FAERS Safety Report 24923855 (Version 2)
Quarter: 2025Q1

REPORT INFORMATION
  Report Type: Spontaneous
  Country: IT (occurrence: IT)
  Receive Date: 20250204
  Receipt Date: 20250210
  Transmission Date: 20250408
  Serious: Yes (Death, Other)
  Sender: GILEAD
  Company Number: IT-GILEAD-2025-0702378

PATIENT
  Age: 59 Year
  Sex: Male

DRUGS (1)
  1. TECARTUS [Suspect]
     Active Substance: BREXUCABTAGENE AUTOLEUCEL
     Indication: Product used for unknown indication
     Route: 042

REACTIONS (2)
  - Disease progression [Fatal]
  - Infection [Unknown]

NARRATIVE: CASE EVENT DATE: 20250202
